FAERS Safety Report 6401131-7 (Version None)
Quarter: 2009Q4

REPORT INFORMATION
  Report Type: 
  Country: None (occurrence: None)
  Receive Date: 20091015
  Receipt Date: 20070327
  Transmission Date: 20100525
  Serious: Yes (Disabling)
  Sender: FDA-Public Use
  Company Number: US-ASTRAZENECA-2006UW08190

PATIENT
  Sex: Female
  Weight: 107 kg

DRUGS (6)
  1. SEROQUEL [Suspect]
     Indication: BIPOLAR DISORDER
     Dosage: 25-600 MG
     Route: 048
     Dates: start: 20030611, end: 20060718
  2. SEROQUEL [Suspect]
     Indication: AFFECTIVE DISORDER
     Dosage: 25-600 MG
     Route: 048
     Dates: start: 20030611, end: 20060718
  3. ACCUPRIL [Concomitant]
     Indication: HYPERTENSION
     Route: 048
     Dates: start: 20020131
  4. GLUCOTROL XL [Concomitant]
     Indication: TYPE 2 DIABETES MELLITUS
     Route: 048
     Dates: start: 20020131
  5. ZOLOFT [Concomitant]
     Route: 048
     Dates: start: 20030131
  6. LIPITOR [Concomitant]
     Route: 048
     Dates: start: 20040105

REACTIONS (1)
  - ILL-DEFINED DISORDER [None]
